FAERS Safety Report 9460016 (Version 1)
Quarter: 2013Q3

REPORT INFORMATION
  Report Type: Spontaneous
  Country: US (occurrence: None)
  Receive Date: 20130813
  Receipt Date: 20130813
  Transmission Date: 20140515
  Serious: Yes (Other)
  Sender: FDA-Public Use
  Company Number: None

PATIENT
  Age: 55 Year
  Sex: Female
  Weight: 77.11 kg

DRUGS (10)
  1. GELNIQUE [Suspect]
     Indication: HYPERTONIC BLADDER
     Dosage: 30 SACHETS
     Route: 061
     Dates: start: 20130124, end: 20130729
  2. LEVOTHYROXINE [Concomitant]
  3. CYMBALTA [Concomitant]
  4. ATIVAN [Concomitant]
  5. VIT D [Suspect]
  6. FENOFIBRATE [Concomitant]
  7. CRESTOR [Concomitant]
  8. IBUPROFEN [Concomitant]
  9. ZYRTEC [Concomitant]
  10. GENTLE  LOX [Concomitant]

REACTIONS (1)
  - Urticaria [None]
